FAERS Safety Report 13157859 (Version 4)
Quarter: 2017Q1

REPORT INFORMATION
  Report Type: Report from Study
  Country: US (occurrence: US)
  Receive Date: 20170127
  Receipt Date: 20170321
  Transmission Date: 20170428
  Serious: Yes (Hospitalization, Other)
  Sender: FDA-Public Use
  Company Number: US-ALEXION PHARMACEUTICALS INC.-A201700505

PATIENT
  Sex: Female

DRUGS (1)
  1. SOLIRIS [Suspect]
     Active Substance: ECULIZUMAB
     Indication: HAEMOLYTIC URAEMIC SYNDROME
     Route: 042

REACTIONS (8)
  - Asthenia [Unknown]
  - Blood lactate dehydrogenase increased [Unknown]
  - Unresponsive to stimuli [Unknown]
  - Mental status changes [Unknown]
  - Oxygen consumption decreased [Unknown]
  - Platelet count abnormal [Unknown]
  - Blood creatinine abnormal [Unknown]
  - Device use issue [Unknown]

NARRATIVE: CASE EVENT DATE: 20170123
